FAERS Safety Report 16174384 (Version 2)
Quarter: 2019Q2

REPORT INFORMATION
  Report Type: Spontaneous
  Country: DE (occurrence: DE)
  Receive Date: 20190409
  Receipt Date: 20190509
  Transmission Date: 20190711
  Serious: Yes (Other)
  Sender: FDA-Public Use
  Company Number: PHHY2019DE079744

PATIENT
  Sex: Male

DRUGS (4)
  1. SIMBRINZA [Concomitant]
     Active Substance: BRIMONIDINE TARTRATE\BRINZOLAMIDE
     Indication: INTRAOCULAR PRESSURE INCREASED
  2. SIMBRINZA [Concomitant]
     Active Substance: BRIMONIDINE TARTRATE\BRINZOLAMIDE
     Indication: GLAUCOMA
     Dosage: UNK UNK, BID
     Route: 065
  3. SYSTANE HYDRATION (ALC) [Suspect]
     Active Substance: HYALURONATE SODIUM\POLYETHYLENE GLYCOLS\PROPYLENE GLYCOL
     Indication: LACRIMATION INCREASED
  4. SYSTANE HYDRATION (ALC) [Suspect]
     Active Substance: HYALURONATE SODIUM\POLYETHYLENE GLYCOLS\PROPYLENE GLYCOL
     Indication: DRY EYE
     Dosage: UNK UNK, PRN (SEVERAL TIMES A DAY)
     Route: 047
     Dates: start: 20190401

REACTIONS (2)
  - Urinary retention [Not Recovered/Not Resolved]
  - Eyelid disorder [Unknown]

NARRATIVE: CASE EVENT DATE: 201904
